FAERS Safety Report 23323286 (Version 1)
Quarter: 2023Q4

REPORT INFORMATION
  Report Type: Other
  Country: US (occurrence: None)
  Receive Date: 20231220
  Receipt Date: 20231220
  Transmission Date: 20240109
  Serious: No
  Sender: FDA-Public Use
  Company Number: US-ROCHE-3342352

PATIENT
  Age: 47 Year
  Sex: Female

DRUGS (4)
  1. RITUXIMAB [Suspect]
     Active Substance: RITUXIMAB
     Indication: Antiphospholipid syndrome
     Route: 042
  2. RITUXIMAB [Suspect]
     Active Substance: RITUXIMAB
     Indication: COVID-19
  3. ENOXAPARIN [Concomitant]
     Active Substance: ENOXAPARIN
  4. WARFARIN [Concomitant]
     Active Substance: WARFARIN

REACTIONS (2)
  - Off label use [Unknown]
  - No adverse event [Unknown]
